FAERS Safety Report 18666119 (Version 2)
Quarter: 2021Q3

REPORT INFORMATION
  Report Type: Spontaneous
  Country: DE (occurrence: DE)
  Receive Date: 20201226
  Receipt Date: 20210818
  Transmission Date: 20211014
  Serious: Yes (Hospitalization)
  Sender: FDA-Public Use
  Company Number: DE-TEVA-2020-DE-1861339

PATIENT
  Age: 75 Year
  Sex: Male

DRUGS (9)
  1. ASS 100 [Suspect]
     Active Substance: ASPIRIN
     Dosage: 100 MILLIGRAM DAILY; 1?0?0?0
  2. TORASEMID [Suspect]
     Active Substance: TORSEMIDE
     Dosage: 10 MILLIGRAM DAILY; 20 MG, 0.5?0?0?0
  3. LACTULOSE. [Concomitant]
     Active Substance: LACTULOSE
     Dosage: 60 ML DAILY; 1?1?1?0
  4. ORNITHINASPARTAT [Concomitant]
     Dosage: 6 GRAM DAILY; 1?0?1?0
  5. CARVEDILOL. [Concomitant]
     Active Substance: CARVEDILOL
     Dosage: 6.25 MILLIGRAM DAILY; 1?0?0?0
  6. PANTOPRAZOL [Concomitant]
     Active Substance: PANTOPRAZOLE SODIUM
     Dosage: 40 MILLIGRAM DAILY; 1?0?0?0
  7. THIAMIN (VITAMIN B1) [Concomitant]
     Dosage: 100 MILLIGRAM DAILY; 1?0?0?0
  8. SPIRONOLACTON [Suspect]
     Active Substance: SPIRONOLACTONE
     Dosage: 50 MILLIGRAM DAILY; 1?0?0?0
  9. EISEN II [Concomitant]
     Active Substance: FERROUS SULFATE
     Dosage: 100 MILLIGRAM DAILY;  1?0?0?0

REACTIONS (4)
  - Fatigue [Recovering/Resolving]
  - Fall [Recovering/Resolving]
  - Anaemia [Recovering/Resolving]
  - Asthenia [Recovering/Resolving]
